FAERS Safety Report 15465312 (Version 1)
Quarter: 2018Q4

REPORT INFORMATION
  Report Type: Report from Study
  Country: ES (occurrence: ES)
  Receive Date: 20181004
  Receipt Date: 20181004
  Transmission Date: 20190204
  Serious: Yes (Other)
  Sender: FDA-Public Use
  Company Number: ES-TEVA-2018-ES-960949

PATIENT
  Age: 71 Year
  Sex: Male

DRUGS (3)
  1. AZTREONAM (2340A) [Suspect]
     Active Substance: AZTREONAM
     Dosage: 6 GRAM DAILY; 2GR EVERY 8 HOURS
     Route: 042
     Dates: start: 20171005, end: 20171023
  2. LINEZOLID (1279A) [Suspect]
     Active Substance: LINEZOLID
     Dosage: 1200 MILLIGRAM DAILY; 600MG EVERY 12HORAS
     Route: 042
     Dates: start: 20171005, end: 20171023
  3. COLISTIMETATO DE SODIO ACCORD 2 MILLONES DE UI POLVO PARA SOLUCION INY [Suspect]
     Active Substance: COLISTIMETHATE SODIUM
     Dosage: 4000 KU DAILY; 2 MLL/12H
     Route: 042
     Dates: start: 20171002, end: 20171018

REACTIONS (4)
  - Hypocalcaemia [Recovering/Resolving]
  - Hypomagnesaemia [Recovered/Resolved]
  - Extrasystoles [Recovering/Resolving]
  - Hypokalaemia [Recovered/Resolved]

NARRATIVE: CASE EVENT DATE: 20171023
